FAERS Safety Report 9349241 (Version 1)
Quarter: 2013Q2

REPORT INFORMATION
  Report Type: Spontaneous
  Country: JP (occurrence: JP)
  Receive Date: 20130614
  Receipt Date: 20130614
  Transmission Date: 20140414
  Serious: Yes (Other)
  Sender: FDA-Public Use
  Company Number: JP-AMGEN-JPNSP2013020880

PATIENT
  Age: 32 Year
  Sex: Female

DRUGS (4)
  1. ENBREL [Suspect]
     Indication: RHEUMATOID ARTHRITIS
     Dosage: 50 MG, WEEKLY
     Route: 058
     Dates: start: 20120117, end: 20130110
  2. ENBREL [Suspect]
     Dosage: 50 MG, WEEKLY
     Route: 065
  3. RHEUMATREX                         /00113802/ [Concomitant]
     Indication: RHEUMATOID ARTHRITIS
     Dosage: 2 MG, 3X/WEEK
     Route: 048
     Dates: start: 20100107, end: 20111202
  4. RHEUMATREX                         /00113802/ [Concomitant]
     Dosage: 2 MG, 4X/WEEK
     Route: 048
     Dates: start: 20111203, end: 20121019

REACTIONS (2)
  - Upper respiratory tract inflammation [Unknown]
  - Pneumonia [Recovered/Resolved]
